FAERS Safety Report 7939153-7 (Version None)
Quarter: 2011Q4

REPORT INFORMATION
  Report Type: 
  Country: None (occurrence: None)
  Receive Date: 20111124
  Receipt Date: 20110829
  Transmission Date: 20120403
  Serious: Yes (Hospitalization)
  Sender: FDA-Public Use
  Company Number: DE-ROCHE-1015620

PATIENT
  Sex: Male
  Weight: 93 kg

DRUGS (5)
  1. XELODA [Suspect]
     Indication: COLON CANCER
     Route: 048
  2. OXALIPLATIN [Suspect]
     Indication: COLON CANCER
     Route: 042
  3. AMLODIPINE [Concomitant]
     Indication: HYPERTENSION
     Route: 048
  4. RAMIPRIL BETA COMP [Concomitant]
     Indication: HYPERTENSION
     Dosage: DRUG REPORTED AS: RAMIPRIL BETA
     Route: 048
     Dates: start: 20030101
  5. DIABESIN [Concomitant]
     Indication: DIABETES MELLITUS
     Route: 048
     Dates: start: 20050101

REACTIONS (3)
  - DIARRHOEA [None]
  - ENTERITIS [None]
  - URINARY RETENTION [None]
